FAERS Safety Report 11339349 (Version 1)
Quarter: 2015Q3

REPORT INFORMATION
  Report Type: Spontaneous
  Country: JP (occurrence: JP)
  Receive Date: 20150805
  Receipt Date: 20150805
  Transmission Date: 20151125
  Serious: Yes (Other)
  Sender: FDA-Public Use
  Company Number: JP-AMGEN-JPNSP2015077977

PATIENT
  Sex: Female

DRUGS (1)
  1. ENBREL [Suspect]
     Active Substance: ETANERCEPT
     Indication: PRODUCT USED FOR UNKNOWN INDICATION
     Dosage: 50 MG, UNK
     Route: 058

REACTIONS (7)
  - Insomnia [Unknown]
  - Headache [Unknown]
  - Atypical mycobacterial infection [Unknown]
  - Arthralgia [Unknown]
  - Arthropathy [Unknown]
  - Osteoarthritis [Unknown]
  - Stomatitis [Unknown]

NARRATIVE: CASE EVENT DATE: 201410
